FAERS Safety Report 5859766-6 (Version None)
Quarter: 2008Q3

REPORT INFORMATION
  Report Type: 
  Country: None (occurrence: None)
  Receive Date: 20080827
  Receipt Date: 20080707
  Transmission Date: 20090109
  Serious: Yes (Other)
  Sender: FDA-Public Use
  Company Number: US-PURDUE-USA_2008_0034164

PATIENT
  Age: 46 Year
  Sex: Female
  Weight: 66 kg

DRUGS (3)
  1. OXYCONTIN [Suspect]
     Indication: PAIN
     Dosage: 40 MG, TID
     Dates: start: 20001221, end: 20010612
  2. KLONOPIN [Concomitant]
     Dosage: .5 MG, BID
  3. PREMARIN [Concomitant]
     Dosage: .625 UNK, DAILY

REACTIONS (7)
  - ABNORMAL BEHAVIOUR [None]
  - CONTUSION [None]
  - DRUG DEPENDENCE [None]
  - HEADACHE [None]
  - PNEUMOTHORAX TRAUMATIC [None]
  - RIB FRACTURE [None]
  - ROAD TRAFFIC ACCIDENT [None]
